FAERS Safety Report 6485456-5 (Version None)
Quarter: 2009Q4

REPORT INFORMATION
  Report Type: 
  Country: None (occurrence: None)
  Receive Date: 20091209
  Receipt Date: 20090623
  Transmission Date: 20100525
  Serious: No
  Sender: FDA-Public Use
  Company Number: US-AMGEN-KDL352906

PATIENT
  Sex: Female
  Weight: 98.1 kg

DRUGS (3)
  1. ENBREL [Suspect]
     Indication: PSORIATIC ARTHROPATHY
     Route: 058
     Dates: start: 20070515, end: 20090702
  2. ABILIFY [Concomitant]
  3. EFFEXOR [Concomitant]

REACTIONS (2)
  - HEPATIC ENZYME INCREASED [None]
  - MUSCLE SPASMS [None]
